FAERS Safety Report 6040212-7 (Version None)
Quarter: 2009Q1

REPORT INFORMATION
  Report Type: 
  Country: None (occurrence: None)
  Receive Date: 20090116
  Receipt Date: 20080206
  Transmission Date: 20090719
  Serious: Yes (Disabling)
  Sender: FDA-Public Use
  Company Number: US-BRISTOL-MYERS SQUIBB COMPANY-14041602

PATIENT
  Age: 63 Year
  Sex: Female

DRUGS (8)
  1. ABILIFY [Suspect]
     Indication: BIPOLAR DISORDER
     Dosage: PREVIOUSLY 15MG WAS TAKEN
     Route: 048
     Dates: start: 20070201, end: 20080101
  2. TOPAMAX [Concomitant]
  3. CYMBALTA [Concomitant]
     Indication: MAJOR DEPRESSION
  4. STRATTERA [Concomitant]
  5. DAYTRANA [Concomitant]
  6. METHYLPHENIDATE HCL [Concomitant]
  7. ADDERALL XR 20 [Concomitant]
     Indication: ATTENTION DEFICIT/HYPERACTIVITY DISORDER
  8. LAMICTAL [Concomitant]
     Indication: AFFECTIVE DISORDER
     Dosage: 1 DF - 150, UNIT NOT SPECIFIED

REACTIONS (1)
  - TARDIVE DYSKINESIA [None]
